FAERS Safety Report 6907063-X (Version None)
Quarter: 2010Q3

REPORT INFORMATION
  Report Type: 
  Country: None (occurrence: None)
  Receive Date: 20100804
  Receipt Date: 20080821
  Transmission Date: 20110219
  Serious: Yes (Life-Threatening, Hospitalization, Other)
  Sender: FDA-Public Use
  Company Number: US-PFIZER INC-2007086021

PATIENT
  Sex: Female

DRUGS (7)
  1. NARDIL [Suspect]
     Indication: DEPRESSION
     Dosage: 15 MG,ONCE DAILY
     Route: 048
     Dates: end: 20080701
  2. NARDIL [Suspect]
     Indication: ANXIETY
     Dosage: 45 MG,THREE TIMES DAILY
     Route: 048
     Dates: end: 20080808
  3. NARDIL [Suspect]
     Dosage: 15 MG,ONCE DAILY
     Route: 048
     Dates: start: 20080809
  4. XANAX [Suspect]
  5. TRAMADOL HYDROCHLORIDE [Suspect]
     Dates: start: 20080801
  6. PERCOCET [Suspect]
     Indication: DEPRESSION
     Dates: end: 20080801
  7. PERCOCET [Suspect]
     Indication: ANXIETY

REACTIONS (16)
  - AMNESIA [None]
  - APHASIA [None]
  - BLOOD PRESSURE DECREASED [None]
  - CONVULSION [None]
  - DRUG TOLERANCE [None]
  - DRUG WITHDRAWAL SYNDROME [None]
  - DYSSTASIA [None]
  - FALL [None]
  - GAIT DISTURBANCE [None]
  - HEAD INJURY [None]
  - HEADACHE [None]
  - HYPOAESTHESIA [None]
  - INSOMNIA [None]
  - MALAISE [None]
  - MONOPARESIS [None]
  - OEDEMA PERIPHERAL [None]
